FAERS Safety Report 11385991 (Version 1)
Quarter: 2015Q3

REPORT INFORMATION
  Report Type: Spontaneous
  Country: GB (occurrence: GB)
  Receive Date: 20150817
  Receipt Date: 20150817
  Transmission Date: 20151125
  Serious: Yes (Other)
  Sender: FDA-Public Use
  Company Number: GB-TEVA-585173ACC

PATIENT
  Age: 24 Year
  Sex: Female
  Weight: 85.72 kg

DRUGS (1)
  1. DIAZEPAM. [Suspect]
     Active Substance: DIAZEPAM
     Indication: MUSCLE RELAXANT THERAPY
     Route: 048

REACTIONS (2)
  - Paraesthesia [Recovered/Resolved]
  - Somnolence [Recovered/Resolved]
